FAERS Safety Report 12639047 (Version 1)
Quarter: 2016Q3

REPORT INFORMATION
  Report Type: Spontaneous
  Country: US (occurrence: US)
  Receive Date: 20160809
  Receipt Date: 20160809
  Transmission Date: 20161109
  Serious: Yes (Hospitalization, Other)
  Sender: FDA-Public Use
  Company Number: US-BEH-2016072144

PATIENT
  Sex: Male
  Weight: 100.68 kg

DRUGS (19)
  1. PREDNISONE. [Concomitant]
     Active Substance: PREDNISONE
  2. IPRATROPIUM/ALBUTEROL [Concomitant]
     Active Substance: ALBUTEROL\IPRATROPIUM
  3. EPIPEN [Concomitant]
     Active Substance: EPINEPHRINE
  4. LMX                                /00033401/ [Concomitant]
  5. VIRAMUNE [Concomitant]
     Active Substance: NEVIRAPINE
  6. SPIRIVA [Concomitant]
     Active Substance: TIOTROPIUM BROMIDE MONOHYDRATE
  7. PROAIR HFA [Concomitant]
     Active Substance: ALBUTEROL SULFATE
  8. DIPHENHYDRAMINE. [Concomitant]
     Active Substance: DIPHENHYDRAMINE
  9. ZEMAIRA [Suspect]
     Active Substance: .ALPHA.1-PROTEINASE INHIBITOR HUMAN
     Indication: EMPHYSEMA
     Dosage: 60 MG/KG, QW
     Route: 042
     Dates: start: 20051028
  10. RITALINA LA [Concomitant]
  11. ADVAIR HFA [Concomitant]
     Active Substance: FLUTICASONE PROPIONATE\SALMETEROL XINAFOATE
  12. NEXIUM [Concomitant]
     Active Substance: ESOMEPRAZOLE MAGNESIUM
  13. LEVAQUIN [Concomitant]
     Active Substance: LEVOFLOXACIN
  14. TRUVADA [Concomitant]
     Active Substance: EMTRICITABINE\TENOFOVIR DISOPROXIL FUMARATE
  15. LISINOPRIL. [Concomitant]
     Active Substance: LISINOPRIL
  16. ZEMAIRA [Suspect]
     Active Substance: .ALPHA.1-PROTEINASE INHIBITOR HUMAN
     Indication: ALPHA-1 ANTI-TRYPSIN DEFICIENCY
  17. SODIUM CHLORIDE. [Concomitant]
     Active Substance: SODIUM CHLORIDE
  18. HYDROCODONE W/APAP                 /00607101/ [Concomitant]
  19. IBUPROFEN. [Concomitant]
     Active Substance: IBUPROFEN

REACTIONS (2)
  - Influenza [Unknown]
  - Vomiting [Unknown]
